FAERS Safety Report 9819698 (Version 1)
Quarter: 2014Q1

REPORT INFORMATION
  Report Type: Spontaneous
  Country: US (occurrence: US)
  Receive Date: 20140115
  Receipt Date: 20140115
  Transmission Date: 20141002
  Serious: No
  Sender: FDA-Public Use
  Company Number: US-ALLERGAN-1315331US

PATIENT
  Age: 66 Year
  Sex: Male

DRUGS (7)
  1. PREDNISOLONE ACETATE, 1.0% [Suspect]
     Indication: POSTOPERATIVE CARE
     Dosage: 1 GTT, Q WEEK
     Route: 047
     Dates: end: 20130924
  2. PREDNISOLONE ACETATE, 1.0% [Suspect]
     Dosage: 1 GTT, Q WEEK
     Route: 047
     Dates: end: 20130924
  3. PREDNISOLONE ACETATE, 1.0% [Suspect]
     Dosage: 11 GTT, Q WEEK
     Route: 047
     Dates: end: 20130924
  4. PREDNISOLONE ACETATE, 1.0% [Suspect]
     Dosage: 1 GTT, Q WEEK
     Route: 047
     Dates: end: 20130924
  5. PREDNISOLONE ACETATE, 1.0% [Suspect]
     Dosage: 1 GTT, BID
     Route: 047
  6. FML [Suspect]
     Indication: POSTOPERATIVE CARE
     Dosage: 1 GTT, Q WEEK
     Route: 047
     Dates: end: 20130924
  7. SYSTANE [Suspect]
     Indication: EYE LUBRICATION THERAPY
     Dosage: 1 GTT, UNK
     Dates: end: 20130924

REACTIONS (3)
  - Eye discharge [Recovered/Resolved]
  - Inappropriate schedule of drug administration [Unknown]
  - Off label use [Unknown]
